FAERS Safety Report 8063119-2 (Version None)
Quarter: 2012Q1

REPORT INFORMATION
  Report Type: 
  Country: None (occurrence: None)
  Receive Date: 20120123
  Receipt Date: 20120118
  Transmission Date: 20120608
  Serious: Yes (Hospitalization, Other)
  Sender: FDA-Public Use
  Company Number: US-AMGEN-QUU270345

PATIENT
  Age: 48 Year
  Sex: Female

DRUGS (1)
  1. ENBREL [Suspect]
     Indication: RHEUMATOID ARTHRITIS
     Dosage: 50 MG, QWK
     Route: 058
     Dates: start: 20050101

REACTIONS (15)
  - SINUSITIS [None]
  - FUNGAL SKIN INFECTION [None]
  - IRRITABLE BOWEL SYNDROME [None]
  - ARTHRALGIA [None]
  - NODULE [None]
  - TENDON RUPTURE [None]
  - JOINT SWELLING [None]
  - MEMORY IMPAIRMENT [None]
  - OSTEOMYELITIS [None]
  - GASTROOESOPHAGEAL REFLUX DISEASE [None]
  - OTITIS MEDIA [None]
  - MOBILITY DECREASED [None]
  - TOOTH INFECTION [None]
  - RHEUMATOID ARTHRITIS [None]
  - CYST [None]
